FAERS Safety Report 5629133-9 (Version None)
Quarter: 2008Q1

REPORT INFORMATION
  Report Type: 
  Country: None (occurrence: None)
  Receive Date: 20080216
  Receipt Date: 20080125
  Transmission Date: 20080703
  Serious: No
  Sender: FDA-Public Use
  Company Number: US-BAXTER-2008BH000850

PATIENT
  Age: 62 Year
  Sex: Male
  Weight: 149 kg

DRUGS (16)
  1. HEPARIN SODIUM [Suspect]
     Indication: THROMBOSIS PROPHYLAXIS
     Route: 010
     Dates: start: 20050101
  2. VERAPAMIL [Concomitant]
     Indication: HEART RATE INCREASED
     Dosage: DOSE UNIT:UNKNOWN
     Route: 048
  3. DIATEXZEN [Concomitant]
     Indication: RENAL FAILURE
     Dosage: DOSE UNIT:UNKNOWN
     Route: 065
  4. LISINOPRIL [Concomitant]
     Indication: HYPERTENSION
     Dosage: DOSE UNIT:UNKNOWN
     Route: 048
  5. SENSIPAR [Concomitant]
     Indication: RENAL FAILURE
     Dosage: DOSE UNIT:UNKNOWN
     Route: 065
  6. FLUOXETINE [Concomitant]
     Indication: DEPRESSION
     Dosage: DOSE UNIT:UNKNOWN
     Route: 048
  7. FERROUS SULFATE TAB [Concomitant]
     Indication: MINERAL SUPPLEMENTATION
     Dosage: DOSE UNIT:UNKNOWN
     Route: 048
  8. FINASTERIDE [Concomitant]
     Indication: PROSTATOMEGALY
     Dosage: DOSE UNIT:UNKNOWN
     Route: 048
  9. NEXIUM                                  /UNK/ [Concomitant]
     Indication: GASTROOESOPHAGEAL REFLUX DISEASE
     Dosage: DOSE UNIT:UNKNOWN
     Route: 048
  10. SIMVASTATIN [Concomitant]
     Indication: BLOOD CHOLESTEROL
     Dosage: DOSE UNIT:UNKNOWN
     Route: 048
  11. ASPIRIN [Concomitant]
     Indication: DRUG USE FOR UNKNOWN INDICATION
     Dosage: DOSE UNIT:UNKNOWN
     Route: 048
  12. STOOL SOFTENER [Concomitant]
     Indication: CONSTIPATION
     Dosage: DOSE UNIT:UNKNOWN
     Route: 048
  13. TYLENOL (CAPLET) [Concomitant]
     Indication: PAIN
     Dosage: DOSE UNIT:UNKNOWN
     Route: 048
  14. RENAGEL [Concomitant]
     Indication: RENAL FAILURE
     Dosage: DOSE UNIT:UNKNOWN
     Route: 048
  15. HYDROCODONE BITARTRATE [Concomitant]
     Indication: PAIN
     Dosage: DOSE UNIT:UNKNOWN
     Route: 048
  16. SODIUM BICARBONATE [Concomitant]
     Indication: DRUG USE FOR UNKNOWN INDICATION
     Dosage: DOSE UNIT:UNKNOWN
     Route: 065

REACTIONS (2)
  - RETCHING [None]
  - THROAT TIGHTNESS [None]
